FAERS Safety Report 13727332 (Version 1)
Quarter: 2017Q3

REPORT INFORMATION
  Report Type: Other
  Country: GB (occurrence: US)
  Receive Date: 20170706
  Receipt Date: 20170706
  Transmission Date: 20171127
  Serious: Yes (Other)
  Sender: FDA-Public Use
  Company Number: US-INTERNATIONAL MEDICATION SYSTEMS, LIMITED-2023043

PATIENT
  Age: 29 Year
  Sex: Female
  Weight: 87.3 kg

DRUGS (7)
  1. LIDOCAINE 1.5%, EPINEPHRINE 1:200,000 [Suspect]
     Active Substance: EPINEPHRINE\LIDOCAINE HYDROCHLORIDE
  2. BUPIVACAINE 0.1% [Suspect]
     Active Substance: BUPIVACAINE
     Route: 008
  3. FENTANYL. [Suspect]
     Active Substance: FENTANYL
     Route: 008
  4. BUPIVACAINE 0.25% [Suspect]
     Active Substance: BUPIVACAINE
     Route: 037
  5. FENTANYL 50 MICRO GRAM /ML [Suspect]
     Active Substance: FENTANYL
     Route: 037
  6. 2% CHLORHEXIDINE [Concomitant]
  7. LIDOCAINE 1% [Suspect]
     Active Substance: LIDOCAINE
     Route: 037

REACTIONS (8)
  - Toxicity to various agents [Recovering/Resolving]
  - Palpitations [Recovering/Resolving]
  - Dysgeusia [Recovering/Resolving]
  - Complication associated with device [Recovering/Resolving]
  - Feeling abnormal [Recovering/Resolving]
  - Tinnitus [Recovering/Resolving]
  - Maternal exposure during pregnancy [Recovered/Resolved]
  - Sinus tachycardia [Recovering/Resolving]
